FAERS Safety Report 10485951 (Version 1)
Quarter: 2014Q4

REPORT INFORMATION
  Report Type: Spontaneous
  Country: US (occurrence: US)
  Receive Date: 20141001
  Receipt Date: 20141001
  Transmission Date: 20150528
  Serious: Yes (Other)
  Sender: FDA-Public Use
  Company Number: US-CIPLA LTD.-2014US01459

PATIENT

DRUGS (3)
  1. GRANULOCYTE COLONY-STIMULATING FACTOR [Suspect]
     Active Substance: GRANULOCYTE COLONY-STIMULATING FACTOR NOS
     Indication: HODGKIN^S DISEASE
     Dosage: 5 MICROG/KG/DOSE DAILY STARTING ON DAY 9
  2. GEMCITABINE [Suspect]
     Active Substance: GEMCITABINE\GEMCITABINE HYDROCHLORIDE
     Indication: HODGKIN^S DISEASE
     Dosage: 1,000 MG/M2/DOSE IV OVER 100 MINUTES ON DAYS 1 AND 8 OF  FIRST CYCLE
  3. VINORELBINE [Suspect]
     Active Substance: VINORELBINE\VINORELBINE TARTRATE
     Indication: HODGKIN^S DISEASE
     Dosage: 25 MG/M2/DOSE, ADMINISTERED INTRAVENOUSLY OVER 6 TO 10 MINUTES ON DAYS 1 AND 8 FOR FIRST CYCLE

REACTIONS (2)
  - Myelodysplastic syndrome [Unknown]
  - Coagulation time prolonged [Unknown]
